FAERS Safety Report 10737377 (Version 1)
Quarter: 2015Q1

REPORT INFORMATION
  Report Type: Other
  Country: US (occurrence: US)
  Receive Date: 20150126
  Receipt Date: 20150126
  Transmission Date: 20150721
  Serious: Yes (Death)
  Sender: FDA-Public Use
  Company Number: US-LEHIGH_VALLEY-USA-POI0580201500019

PATIENT
  Age: 34 Year
  Sex: Male

DRUGS (5)
  1. SKELETAL MUSCLE RELAXANT [Suspect]
     Active Substance: UNSPECIFIED INGREDIENT
     Dates: end: 2013
  2. OXYCODONE HCL CAPSULES [Suspect]
     Active Substance: OXYCODONE HYDROCHLORIDE
     Dates: end: 2013
  3. LORAZEPAM. [Suspect]
     Active Substance: LORAZEPAM
     Dates: end: 2013
  4. ALPHA-PPP AMPHETAMINE (HALLUCINOGENIC) [Suspect]
     Active Substance: ALPHA-PYRROLIDINOPROPIOPHENONE
     Dates: end: 2013
  5. MEPROBAMATE. [Suspect]
     Active Substance: MEPROBAMATE
     Dates: end: 2013

REACTIONS (3)
  - Completed suicide [None]
  - Respiratory arrest [None]
  - Cardiac arrest [None]

NARRATIVE: CASE EVENT DATE: 2013
